FAERS Safety Report 5229704-8 (Version None)
Quarter: 2007Q1

REPORT INFORMATION
  Report Type: 
  Country: None (occurrence: None)
  Receive Date: 20070206
  Receipt Date: 20070124
  Transmission Date: 20070707
  Serious: Yes (Hospitalization)
  Sender: FDA-Public Use
  Company Number: JP-PFIZER INC-2007007897

PATIENT
  Sex: Male
  Weight: 33 kg

DRUGS (9)
  1. ZITHROMAC [Suspect]
     Indication: NASOPHARYNGITIS
     Dosage: DAILY DOSE:300MG
     Route: 048
     Dates: start: 20070122, end: 20070122
  2. ZITHROMAC [Suspect]
     Indication: URINARY TRACT INFECTION
  3. VALERIN [Concomitant]
     Indication: EPILEPSY
     Route: 048
  4. PHENOBARBITAL TAB [Concomitant]
     Indication: EPILEPSY
     Route: 048
     Dates: start: 20030430
  5. CLEANAL [Concomitant]
     Route: 048
  6. GASCON [Concomitant]
     Route: 048
     Dates: start: 20030430
  7. SENNOSIDE A+B CALCIUM [Concomitant]
     Route: 048
     Dates: start: 20030430
  8. ENSURE [Concomitant]
     Route: 048
     Dates: start: 20030430
  9. HOKUNALIN [Concomitant]
     Route: 062
     Dates: start: 20030430

REACTIONS (1)
  - HAEMATURIA [None]
